FAERS Safety Report 22261078 (Version 1)
Quarter: 2023Q2

REPORT INFORMATION
  Report Type: Spontaneous
  Country: US (occurrence: US)
  Receive Date: 20230427
  Receipt Date: 20230427
  Transmission Date: 20230722
  Serious: No
  Sender: FDA-Public Use
  Company Number: US-JUBILANT PHARMA LTD-2023US000205

PATIENT
  Sex: Male

DRUGS (2)
  1. RUBY-FILL [Suspect]
     Active Substance: RUBIDIUM CHLORIDE RB-82
     Indication: Scan myocardial perfusion
     Dosage: 36.09 MCI, SINGLE DOSE (REST)
     Dates: start: 20230419, end: 20230419
  2. RUBY-FILL [Suspect]
     Active Substance: RUBIDIUM CHLORIDE RB-82
     Dosage: 30.64 MCI, SINGLE DOSE (STRESS)
     Dates: start: 20230419, end: 20230419

REACTIONS (1)
  - Product preparation error [Unknown]

NARRATIVE: CASE EVENT DATE: 20230419
